FAERS Safety Report 8542091-2 (Version None)
Quarter: 2012Q3

REPORT INFORMATION
  Report Type: 
  Country: None (occurrence: None)
  Receive Date: 20120726
  Receipt Date: 20111014
  Transmission Date: 20120928
  Serious: No
  Sender: FDA-Public Use
  Company Number: US-ASTRAZENECA-2011SE62139

PATIENT
  Age: 63 Year
  Sex: Female
  Weight: 68 kg

DRUGS (3)
  1. SEROQUEL [Suspect]
     Indication: BIPOLAR DISORDER
     Route: 048
  2. SEROQUEL [Suspect]
     Route: 048
     Dates: start: 20080101
  3. SEROQUEL [Suspect]
     Route: 048

REACTIONS (4)
  - SLEEP DISORDER [None]
  - DRUG DOSE OMISSION [None]
  - INSOMNIA [None]
  - OFF LABEL USE [None]
